FAERS Safety Report 4645420-5 (Version None)
Quarter: 2005Q2

REPORT INFORMATION
  Report Type: 
  Country: None (occurrence: None)
  Receive Date: 20050425
  Receipt Date: 20050412
  Transmission Date: 20051028
  Serious: Yes (Hospitalization)
  Sender: FDA-Public Use
  Company Number: 2005059228

PATIENT
  Age: 72 Year
  Sex: Female

DRUGS (8)
  1. AZITHROMYCIN [Suspect]
     Indication: UPPER RESPIRATORY TRACT INFLAMMATION
     Dosage: 500 MG, ORAL
     Route: 048
     Dates: start: 20050404, end: 20050401
  2. ZALTOPROFEN (ZALTOPROFEN) [Suspect]
     Indication: ILL-DEFINED DISORDER
     Dosage: 240 MG, ORAL
     Route: 048
     Dates: start: 20050404
  3. CLEMASTINE FUMARATE [Concomitant]
  4. CODEINE PHOSPHATE (CODEINE PHOSPHATE) [Concomitant]
  5. GLUCOSE (GLUCOSE) [Concomitant]
  6. SODIUM SALICYLATE ECT [Concomitant]
  7. CEFOZOPRAN HYDROCHLORIDE (CEFOZOPRAN HYDROCHLORIDE) [Concomitant]
  8. THIAMINE HCL [Concomitant]

REACTIONS (2)
  - LOSS OF CONSCIOUSNESS [None]
  - PYREXIA [None]
